FAERS Safety Report 18791570 (Version 1)
Quarter: 2021Q1

REPORT INFORMATION
  Report Type: Spontaneous
  Country: US (occurrence: US)
  Receive Date: 20210126
  Receipt Date: 20210126
  Transmission Date: 20210419
  Serious: No
  Sender: FDA-Public Use
  Company Number: US-PERRIGO-20US002601

PATIENT
  Sex: Male
  Weight: 21.32 kg

DRUGS (2)
  1. IBUPROFEN. [Suspect]
     Active Substance: IBUPROFEN
     Indication: PYREXIA
     Dosage: 100 MG, EVERY 4 HOURS, PRN
     Route: 048
     Dates: start: 2018, end: 201910
  2. IBUPROFEN. [Suspect]
     Active Substance: IBUPROFEN
     Indication: PAIN
     Dosage: 100 MG, EVERY 4 HOURS, PRN
     Route: 048
     Dates: start: 201910, end: 202002

REACTIONS (7)
  - Abdominal discomfort [Recovering/Resolving]
  - Drug administered in wrong device [Recovered/Resolved]
  - Exposure to unspecified agent [Recovered/Resolved]
  - Dyspnoea [Recovering/Resolving]
  - Underdose [Recovered/Resolved]
  - Diarrhoea [Recovering/Resolving]
  - Sinus disorder [Recovering/Resolving]

NARRATIVE: CASE EVENT DATE: 2018
